FAERS Safety Report 17743995 (Version 4)
Quarter: 2024Q3

REPORT INFORMATION
  Report Type: Spontaneous
  Country: IT (occurrence: IT)
  Receive Date: 20200505
  Receipt Date: 20240828
  Transmission Date: 20241017
  Serious: Yes (Hospitalization, Other)
  Sender: NOVARTIS
  Company Number: None

PATIENT
  Age: 6 Month
  Sex: Female

DRUGS (7)
  1. CYCLOSPORINE [Suspect]
     Active Substance: CYCLOSPORINE
     Indication: Prophylaxis against graft versus host disease
     Dosage: UNK
     Route: 065
  2. FLUDARABINE PHOSPHATE [Suspect]
     Active Substance: FLUDARABINE PHOSPHATE
     Indication: Allogenic stem cell transplantation
     Dosage: 150 MG/M2, QD, 3 DOSAGES 50 MG/M2 DAILY, 50 MG/M2, TID (3/DAY)
     Route: 065
  3. THIOTEPA [Suspect]
     Active Substance: THIOTEPA
     Indication: Allogenic stem cell transplantation
     Dosage: 5 MG/KG, BID (2/DAY), 2 DOSAGES 10 MG/KG DAILY
     Route: 065
  4. PREDNISONE [Suspect]
     Active Substance: PREDNISONE
     Indication: Prophylaxis against graft versus host disease
     Dosage: 1 DOSAGE .4 MG/KG DAILY
     Route: 065
  5. BUSULFAN [Suspect]
     Active Substance: BUSULFAN
     Indication: Allogenic stem cell transplantation
     Dosage: 3 DOSAGES 3.2 MG/KG DAILY
     Route: 065
  6. THYMOGLOBULIN [Suspect]
     Active Substance: LAPINE T-LYMPHOCYTE IMMUNE GLOBULIN
     Indication: Allogenic stem cell transplantation
     Dosage: 13.5 MG/KG, QD, 3 DOSAGES 4.5 MG/KG DAILY, 4.5 MG/KG, TID (3/DAY)
     Route: 065
  7. CYCLOPHOSPHAMIDE [Suspect]
     Active Substance: CYCLOPHOSPHAMIDE
     Indication: Prophylaxis against graft versus host disease
     Dosage: 50 MG/KG, BID 2/DAY)
     Route: 065

REACTIONS (5)
  - Graft versus host disease [Recovered/Resolved]
  - Polymyositis [Recovered/Resolved]
  - Pseudomonal sepsis [Unknown]
  - Pneumonia [Unknown]
  - Chronic graft versus host disease [Recovered/Resolved]
